FAERS Safety Report 9115307 (Version 2)
Quarter: 2013Q2

REPORT INFORMATION
  Report Type: Spontaneous
  Country: US (occurrence: US)
  Receive Date: 20130225
  Receipt Date: 20130528
  Transmission Date: 20140414
  Serious: Yes (Other)
  Sender: FDA-Public Use
  Company Number: US-PAR PHARMACEUTICAL, INC-2013SCPR005571

PATIENT
  Sex: 0

DRUGS (5)
  1. FENTANYL TRANSDERMAL SYSTEM [Suspect]
     Indication: BACK PAIN
     Dosage: 1 PATCH, EVERY 72 HOURS
     Route: 062
     Dates: start: 201212, end: 20130209
  2. FENTANYL TRANSDERMAL SYSTEM [Suspect]
     Indication: SPINAL DISORDER
  3. HYDROCODONE [Concomitant]
     Indication: BACK PAIN
     Dosage: 2 DF, EVERY 6 HOURS
     Route: 048
  4. DILTIAZEM CD [Concomitant]
     Indication: HYPERTENSION
     Dosage: 1 DF, ONCE DAILY
     Route: 048
  5. PRILOSEC                           /00661201/ [Concomitant]
     Indication: HYPERCHLORHYDRIA
     Dosage: 1 DF, ONCE DAILY
     Route: 048

REACTIONS (9)
  - Hostility [Unknown]
  - Depressed mood [Unknown]
  - Overdose [Unknown]
  - Somnolence [Not Recovered/Not Resolved]
  - Application site irritation [Recovered/Resolved]
  - Application site erythema [Recovering/Resolving]
  - Application site dermatitis [Recovering/Resolving]
  - Product adhesion issue [Unknown]
  - Product quality issue [Unknown]
